FAERS Safety Report 8233788-2 (Version None)
Quarter: 2012Q1

REPORT INFORMATION
  Report Type: 
  Country: None (occurrence: None)
  Receive Date: 20120326
  Receipt Date: 20120312
  Transmission Date: 20120608
  Serious: Yes (Death)
  Sender: FDA-Public Use
  Company Number: CH-MYLANLABS-2012S1005795

PATIENT
  Age: 45 Year
  Sex: Male

DRUGS (3)
  1. LORAZEPAM [Suspect]
     Route: 065
  2. NORDAZEPAM [Suspect]
     Route: 065
  3. OXAZEPAM [Suspect]
     Route: 065

REACTIONS (1)
  - HYPOTHERMIA [None]
